FAERS Safety Report 5658660-3 (Version None)
Quarter: 2008Q1

REPORT INFORMATION
  Report Type: 
  Country: None (occurrence: None)
  Receive Date: 20080310
  Receipt Date: 20070430
  Transmission Date: 20080703
  Serious: Yes (Other)
  Sender: FDA-Public Use
  Company Number: US-BAYER-200710946BCC

PATIENT
  Age: 75 Year
  Sex: Male
  Weight: 82 kg

DRUGS (6)
  1. ALEVE [Suspect]
     Indication: ARTHRITIS
     Dosage: TOTAL DAILY DOSE: 220 MG  UNIT DOSE: 220 MG
     Route: 048
     Dates: start: 20070315
  2. HEART MEDICATION [Concomitant]
  3. ZOCOR [Concomitant]
  4. LOTREL [Concomitant]
  5. MEXILETINE HYDROCHLORIDE [Concomitant]
  6. SOTALOL [Concomitant]

REACTIONS (2)
  - BLOOD URINE PRESENT [None]
  - GASTRIC HAEMORRHAGE [None]
